FAERS Safety Report 7760693-8 (Version None)
Quarter: 2011Q3

REPORT INFORMATION
  Report Type: 
  Country: None (occurrence: None)
  Receive Date: 20110919
  Receipt Date: 20110909
  Transmission Date: 20111222
  Serious: Yes (Other)
  Sender: FDA-Public Use
  Company Number: US-ASTRAZENECA-2011SE54722

PATIENT
  Sex: Male

DRUGS (2)
  1. PLAVIX [Concomitant]
  2. NEXIUM [Suspect]
     Route: 048

REACTIONS (2)
  - GASTRIC HAEMORRHAGE [None]
  - DRUG DOSE OMISSION [None]
